FAERS Safety Report 4667920-4 (Version None)
Quarter: 2005Q2

REPORT INFORMATION
  Report Type: 
  Country: None (occurrence: None)
  Receive Date: 20050520
  Receipt Date: 20050508
  Transmission Date: 20051028
  Serious: Yes (Death)
  Sender: FDA-Public Use
  Company Number: TW-KINGPHARMUSA00001-K200500602

PATIENT
  Age: 57 Year
  Sex: Male

DRUGS (5)
  1. DOPAMINE HCL [Suspect]
     Route: 042
  2. SOMATOSTATIN [Suspect]
     Route: 042
  3. AMIODARONE HCL [Concomitant]
     Route: 042
  4. EPINEPHRINE [Suspect]
     Indication: RESUSCITATION
     Dosage: UNK, UNK
  5. EPINEPHRINE [Suspect]
     Dosage: 15 MG, UNK

REACTIONS (15)
  - ABDOMINAL DISTENSION [None]
  - AIR EMBOLISM [None]
  - CARDIAC ARREST [None]
  - CLOSTRIDIUM BACTERAEMIA [None]
  - HYPOCALCAEMIA [None]
  - HYPOKALAEMIA [None]
  - INTESTINAL DILATATION [None]
  - INTESTINAL INFARCTION [None]
  - METABOLIC ACIDOSIS [None]
  - MULTI-ORGAN FAILURE [None]
  - NECROTISING COLITIS [None]
  - PERITONITIS [None]
  - PNEUMATOSIS CYSTOIDES INTESTINALIS [None]
  - PYREXIA [None]
  - SEPSIS [None]
